FAERS Safety Report 8621816-1 (Version None)
Quarter: 2012Q3

REPORT INFORMATION
  Report Type: 
  Country: None (occurrence: None)
  Receive Date: 20120821
  Receipt Date: 20120821
  Transmission Date: 20120928
  Serious: No
  Sender: FDA-Public Use
  Company Number: None

PATIENT
  Age: 65 Year
  Sex: Female
  Weight: 53.5244 kg

DRUGS (1)
  1. ATELVIA [Suspect]
     Indication: OSTEOPOROSIS
     Dosage: 35 MG EVERY WEEK PO
     Route: 048
     Dates: start: 20120722, end: 20120818

REACTIONS (4)
  - ABDOMINAL PAIN [None]
  - MYALGIA [None]
  - ARTHRALGIA [None]
  - SWELLING [None]
